FAERS Safety Report 11400720 (Version 1)
Quarter: 2015Q3

REPORT INFORMATION
  Report Type: Spontaneous
  Country: US (occurrence: US)
  Receive Date: 20150820
  Receipt Date: 20150820
  Transmission Date: 20151125
  Serious: Yes (Life-Threatening, Hospitalization)
  Sender: FDA-Public Use
  Company Number: US-GE HEALTHCARE MEDICAL DIAGNOSTICS-VISP-PR-1508L-0318

PATIENT
  Age: 75 Year
  Sex: Male

DRUGS (8)
  1. VISIPAQUE [Suspect]
     Active Substance: IODIXANOL
     Indication: ACUTE MYOCARDIAL INFARCTION
     Route: 013
  2. VISIPAQUE [Suspect]
     Active Substance: IODIXANOL
     Indication: CARDIAC FAILURE CONGESTIVE
  3. ASPIRIN. [Concomitant]
     Active Substance: ASPIRIN
  4. VISIPAQUE [Suspect]
     Active Substance: IODIXANOL
     Indication: BRADYCARDIA
  5. VISIPAQUE [Suspect]
     Active Substance: IODIXANOL
     Indication: ANGINA UNSTABLE
     Route: 013
  6. OMEPRAZOLE. [Concomitant]
     Active Substance: OMEPRAZOLE
  7. VISIPAQUE [Suspect]
     Active Substance: IODIXANOL
     Indication: DIAGNOSTIC PROCEDURE
  8. VISIPAQUE [Suspect]
     Active Substance: IODIXANOL
     Indication: THERAPEUTIC PROCEDURE

REACTIONS (2)
  - Thrombocytopenia [Recovered/Resolved]
  - Anaphylactic reaction [Recovered/Resolved]
